FAERS Safety Report 24552267 (Version 1)
Quarter: 2024Q4

REPORT INFORMATION
  Report Type: Spontaneous
  Country: FR (occurrence: FR)
  Receive Date: 20241026
  Receipt Date: 20241026
  Transmission Date: 20250115
  Serious: Yes (Other)
  Sender: TEVA
  Company Number: None

PATIENT
  Age: 74 Year
  Sex: Male
  Weight: 82 kg

DRUGS (5)
  1. ALLOPURINOL [Suspect]
     Active Substance: ALLOPURINOL
     Indication: Gout
     Dosage: YEARS
     Route: 065
  2. KARDEGIC [Suspect]
     Active Substance: ASPIRIN DL-LYSINE
     Indication: Chronic kidney disease
     Dosage: YEARS
     Route: 065
  3. DAPAGLIFLOZIN [Suspect]
     Active Substance: DAPAGLIFLOZIN
     Indication: Chronic kidney disease
     Route: 065
     Dates: start: 20240115, end: 20240215
  4. HYDROCHLOROTHIAZIDE\RAMIPRIL [Suspect]
     Active Substance: HYDROCHLOROTHIAZIDE\RAMIPRIL
     Indication: Hypertension
     Route: 065
     Dates: start: 20240115, end: 20240215
  5. HYDROCHLOROTHIAZIDE\RAMIPRIL [Suspect]
     Active Substance: HYDROCHLOROTHIAZIDE\RAMIPRIL
     Indication: Hypertension
     Dosage: 5/12.5MG YEARS
     Route: 065

REACTIONS (2)
  - Tooth loss [Recovered/Resolved with Sequelae]
  - Tooth fracture [Recovered/Resolved with Sequelae]

NARRATIVE: CASE EVENT DATE: 20240315
